FAERS Safety Report 11437686 (Version 1)
Quarter: 2015Q3

REPORT INFORMATION
  Report Type: Spontaneous
  Country: US (occurrence: US)
  Receive Date: 20150821
  Receipt Date: 20150821
  Transmission Date: 20151125
  Serious: No
  Sender: FDA-Public Use
  Company Number: US-ELI_LILLY_AND_COMPANY-US200706002931

PATIENT
  Age: 37 Year
  Sex: Female

DRUGS (3)
  1. ABILIFY [Concomitant]
     Active Substance: ARIPIPRAZOLE
     Dosage: 15 MG, UNK
     Dates: start: 200702
  2. LAMICTAL [Concomitant]
     Active Substance: LAMOTRIGINE
     Dosage: 600 MG, UNK
     Dates: start: 200702
  3. CYMBALTA [Suspect]
     Active Substance: DULOXETINE HYDROCHLORIDE
     Indication: MAJOR DEPRESSION
     Dosage: 60 MG, DAILY (1/D)
     Route: 048
     Dates: start: 200702

REACTIONS (2)
  - Dystonia [Recovered/Resolved]
  - Disorientation [Recovered/Resolved]
